FAERS Safety Report 9705666 (Version 3)
Quarter: 2015Q3

REPORT INFORMATION
  Report Type: Spontaneous
  Country: US (occurrence: US)
  Receive Date: 20131122
  Receipt Date: 20150803
  Transmission Date: 20151125
  Serious: No
  Sender: FDA-Public Use
  Company Number: US-GILEAD-2008-0017259

PATIENT
  Age: 60 Year
  Sex: Female

DRUGS (1)
  1. LETAIRIS [Suspect]
     Active Substance: AMBRISENTAN

REACTIONS (5)
  - Dyspnoea [None]
  - Weight increased [None]
  - Peripheral swelling [None]
  - Swelling [None]
  - Headache [None]
